FAERS Safety Report 5069087-X (Version None)
Quarter: 2006Q3

REPORT INFORMATION
  Report Type: 
  Country: None (occurrence: None)
  Receive Date: 20060731
  Receipt Date: 20060719
  Transmission Date: 20061208
  Serious: Yes (Death, Life-Threatening, Hospitalization, Other)
  Sender: FDA-Public Use
  Company Number: 2006US001545

PATIENT
  Age: 63 Year
  Sex: Female
  Weight: 58.5 kg

DRUGS (1)
  1. PROGRAF [Suspect]
     Indication: PROPHYLAXIS AGAINST TRANSPLANT REJECTION
     Dosage: 1 MG, BID, ORAL
     Route: 048
     Dates: start: 20040129, end: 20060614

REACTIONS (8)
  - CARDIAC FAILURE [None]
  - ENTEROCOCCAL INFECTION [None]
  - MULTI-ORGAN FAILURE [None]
  - PSEUDOMONAS INFECTION [None]
  - RENAL FAILURE ACUTE [None]
  - RESPIRATORY FAILURE [None]
  - STAPHYLOCOCCAL INFECTION [None]
  - THROMBOTIC MICROANGIOPATHY [None]
